FAERS Safety Report 25946839 (Version 1)
Quarter: 2025Q4

REPORT INFORMATION
  Report Type: Report from Study
  Country: US (occurrence: US)
  Receive Date: 20251022
  Receipt Date: 20251022
  Transmission Date: 20260118
  Serious: Yes (Other)
  Sender: ROCHE
  Company Number: US-ROCHE-10000412932

PATIENT
  Sex: Male

DRUGS (8)
  1. MYCOPHENOLATE MOFETIL [Suspect]
     Active Substance: MYCOPHENOLATE MOFETIL
     Indication: Prophylaxis against transplant rejection
     Dosage: BEGINNING DAY +1 UNTIL APPROXIMATELY DAY +45
     Route: 065
  2. BUSULFAN [Suspect]
     Active Substance: BUSULFAN
     Indication: Prophylaxis against transplant rejection
     Dosage: 4 DAYS (DAY -8 TO -5), TO ACHIEVE AN AUC24H OF 3600 TO 6000 MM*MIN/L (14.78 TO 24.63 MG X H/L Q24H);
     Route: 065
  3. LAPINE T-LYMPHOCYTE IMMUNE GLOBULIN [Suspect]
     Active Substance: LAPINE T-LYMPHOCYTE IMMUNE GLOBULIN
     Indication: Prophylaxis against transplant rejection
     Dosage: 3 MG/KG/?DAY X 3 DAYS (DAY -9 TO -7
     Route: 065
  4. FLUDARABINE [Suspect]
     Active Substance: FLUDARABINE PHOSPHATE
     Indication: Prophylaxis against transplant rejection
     Dosage: 30 MG/M2 /DAY FOR 5 DAYS (DAY -6 TO -2)
     Route: 065
  5. THIOTEPA [Suspect]
     Active Substance: THIOTEPA
     Indication: Prophylaxis against transplant rejection
     Dosage: 5MG/KG/DAY X 2 DAYS (DAY -3 TO -2),
     Route: 065
  6. CYCLOSPORINE [Suspect]
     Active Substance: CYCLOSPORINE
     Indication: Prophylaxis against transplant rejection
     Dosage: DAY -1 WITH A
     Route: 042
  7. TACROLIMUS [Suspect]
     Active Substance: TACROLIMUS
     Indication: Prophylaxis against transplant rejection
     Dosage: ORAL TACROLIMUS POST-ENGRAFTMENT,?WHICH THEY RECEIVED FOR A MINIMUM OF 3 MONTHS?POST-TRANSPLANT.
     Route: 048
  8. HYDROXYUREA [Suspect]
     Active Substance: HYDROXYUREA
     Indication: Prophylaxis against transplant rejection
     Dosage: FROM DAY -40 TO DAY -11
     Route: 065

REACTIONS (4)
  - Cytomegalovirus infection reactivation [Unknown]
  - Neutropenic colitis [Unknown]
  - Pneumonia staphylococcal [Unknown]
  - BK virus infection [Unknown]
